FAERS Safety Report 10266624 (Version 1)
Quarter: 2014Q2

REPORT INFORMATION
  Report Type: Spontaneous
  Country: CA (occurrence: CA)
  Receive Date: 20140629
  Receipt Date: 20140629
  Transmission Date: 20141212
  Serious: Yes (Other)
  Sender: FDA-Public Use
  Company Number: PHHY2014CA079194

PATIENT
  Sex: Female

DRUGS (3)
  1. ACLASTA [Suspect]
     Dosage: UNK
     Route: 042
  2. ZOLEDRONATE [Suspect]
     Dosage: UNK UKN, UNK
  3. RALOXIFENE HYDROCHLORIDE [Suspect]
     Indication: OSTEOGENESIS IMPERFECTA
     Dosage: UNK

REACTIONS (3)
  - Fracture [Unknown]
  - Respiratory tract congestion [Unknown]
  - Dizziness [Unknown]
